FAERS Safety Report 10184154 (Version 3)
Quarter: 2015Q1

REPORT INFORMATION
  Report Type: Report from Study
  Country: DE (occurrence: DE)
  Receive Date: 20140520
  Receipt Date: 20150220
  Transmission Date: 20150720
  Serious: Yes (Hospitalization, Other)
  Sender: FDA-Public Use
  Company Number: DE-INCYTE CORPORATION-2014IN001209

PATIENT
  Sex: Female
  Weight: 80 kg

DRUGS (19)
  1. RAMIPRIL. [Concomitant]
     Active Substance: RAMIPRIL
     Indication: HYPERTENSION
     Dosage: 5 OT, QD
     Route: 065
     Dates: start: 20121031
  2. EBRANTIL [Concomitant]
     Active Substance: URAPIDIL
     Indication: HYPERTENSION
     Dosage: 20 MG, QD
     Route: 042
     Dates: start: 20121125, end: 20121125
  3. EBRANTIL [Concomitant]
     Active Substance: URAPIDIL
     Indication: HYPERTENSIVE CRISIS
  4. OXYGESIC [Concomitant]
     Active Substance: OXYCODONE
     Indication: MYELOFIBROSIS
     Dosage: 10 OT, BID
     Route: 065
     Dates: start: 20121205
  5. VERGENTAN [Concomitant]
     Indication: NAUSEA
     Dosage: 150 MG, QD
     Route: 065
     Dates: start: 20130521, end: 20130525
  6. BAYOTENSIN AKUT [Concomitant]
     Indication: HYPERTENSION
     Route: 065
     Dates: start: 20130806
  7. MCP [Concomitant]
     Active Substance: METOCLOPRAMIDE HYDROCHLORIDE
     Indication: GASTROINTESTINAL DISORDER
     Dosage: 20 DRP, TID
     Route: 065
     Dates: start: 20130917
  8. INCB018424 [Suspect]
     Active Substance: RUXOLITINIB
     Indication: MYELOFIBROSIS
     Dosage: 20 MG, QD (2 DF)
     Route: 048
     Dates: start: 20121031, end: 20121125
  9. RED BLOOD CELLS, CONCENTRATED [Concomitant]
     Active Substance: HUMAN RED BLOOD CELL
     Dosage: 2 DF, PER DAY
     Route: 065
     Dates: start: 20130315, end: 20130315
  10. INCB018424 [Suspect]
     Active Substance: RUXOLITINIB
     Dosage: 20 MG, QD (2 DF)
     Route: 048
     Dates: start: 20130526, end: 20130826
  11. BISOPROLOL [Concomitant]
     Active Substance: BISOPROLOL
     Dates: start: 20121031
  12. RED BLOOD CELLS, CONCENTRATED [Concomitant]
     Active Substance: HUMAN RED BLOOD CELL
     Indication: PRODUCT USED FOR UNKNOWN INDICATION
     Dosage: 2 DF, PER DAY
     Route: 065
     Dates: start: 20121221, end: 20121221
  13. RED BLOOD CELLS, CONCENTRATED [Concomitant]
     Active Substance: HUMAN RED BLOOD CELL
     Dosage: UNK
     Route: 065
     Dates: start: 20130523
  14. RAMIPRIL. [Concomitant]
     Active Substance: RAMIPRIL
     Dates: start: 20121205
  15. INCB018424 [Suspect]
     Active Substance: RUXOLITINIB
     Dosage: 20 MG, QD (2 DF)
     Route: 048
     Dates: start: 20121201, end: 20130520
  16. BISOPROLOL [Concomitant]
     Active Substance: BISOPROLOL
     Indication: HYPERTENSION
     Route: 065
     Dates: start: 20121017
  17. RAMIPRIL PLUS [Concomitant]
     Active Substance: RAMIPRIL
     Indication: HYPERTENSION
     Route: 065
     Dates: start: 20121017
  18. HALOPERIDOL. [Concomitant]
     Active Substance: HALOPERIDOL
     Indication: MYELOFIBROSIS
     Dosage: 3 DRP, TID
     Route: 065
     Dates: start: 20121205
  19. INCB018424 [Suspect]
     Active Substance: RUXOLITINIB
     Dosage: 20 MG, QD (2 DF)
     Route: 048
     Dates: start: 20130827, end: 20130906

REACTIONS (5)
  - Headache [Recovered/Resolved]
  - Depression [Recovering/Resolving]
  - Back pain [Recovered/Resolved]
  - Back pain [Recovered/Resolved]
  - Migraine with aura [Recovered/Resolved]

NARRATIVE: CASE EVENT DATE: 20130523
